FAERS Safety Report 5509347-9 (Version None)
Quarter: 2007Q4

REPORT INFORMATION
  Report Type: 
  Country: None (occurrence: None)
  Receive Date: 20071107
  Receipt Date: 20071029
  Transmission Date: 20080405
  Serious: Yes (Other)
  Sender: FDA-Public Use
  Company Number: US-PFIZER INC-2007091183

PATIENT
  Age: 17 Year
  Sex: Male

DRUGS (1)
  1. SERTRALINE [Suspect]
     Dates: start: 20060901, end: 20071001

REACTIONS (3)
  - DEPRESSION [None]
  - PANIC DISORDER [None]
  - SUICIDAL IDEATION [None]
